FAERS Safety Report 24573741 (Version 3)
Quarter: 2024Q4

REPORT INFORMATION
  Report Type: Spontaneous
  Country: RO (occurrence: RO)
  Receive Date: 20241103
  Receipt Date: 20241210
  Transmission Date: 20250115
  Serious: Yes (Hospitalization, Other)
  Sender: UCB
  Company Number: None

PATIENT
  Age: 70 Year
  Sex: Male

DRUGS (5)
  1. BIMEKIZUMAB [Suspect]
     Active Substance: BIMEKIZUMAB
     Indication: Psoriasis
     Dosage: UNK
     Dates: start: 202407
  2. BIMEKIZUMAB [Suspect]
     Active Substance: BIMEKIZUMAB
     Indication: Psoriatic arthropathy
  3. TALTZ [Suspect]
     Active Substance: IXEKIZUMAB
     Indication: Psoriatic arthropathy
     Dosage: 80 MG, OTHER (EVERY 4 WEEKS)
     Dates: start: 202201, end: 202407
  4. TALTZ [Suspect]
     Active Substance: IXEKIZUMAB
     Indication: Psoriasis
  5. METHOTREXATE [Concomitant]
     Active Substance: METHOTREXATE
     Indication: Arthralgia
     Dosage: 10 MG, UNKNOWN

REACTIONS (7)
  - Dysentery [Recovered/Resolved]
  - Hiatus hernia [Unknown]
  - Fungal oesophagitis [Unknown]
  - Faecal calprotectin abnormal [Unknown]
  - Enteritis infectious [Unknown]
  - Paronychia [Unknown]
  - Drug ineffective [Unknown]

NARRATIVE: CASE EVENT DATE: 20230101
